FAERS Safety Report 25913525 (Version 1)
Quarter: 2025Q4

REPORT INFORMATION
  Report Type: Spontaneous
  Country: US (occurrence: US)
  Receive Date: 20251013
  Receipt Date: 20251013
  Transmission Date: 20260117
  Serious: No
  Sender: ABBVIE
  Company Number: US-ABBVIE-6496015

PATIENT
  Age: 51 Year
  Sex: Male
  Weight: 88.45 kg

DRUGS (3)
  1. RINVOQ [Suspect]
     Active Substance: UPADACITINIB
     Indication: Crohn^s disease
     Route: 048
     Dates: start: 202509, end: 20250918
  2. RINVOQ [Suspect]
     Active Substance: UPADACITINIB
     Indication: Crohn^s disease
     Route: 048
     Dates: start: 20250919
  3. RINVOQ [Suspect]
     Active Substance: UPADACITINIB
     Indication: Crohn^s disease
     Route: 048
     Dates: start: 202507, end: 202509

REACTIONS (9)
  - Frequent bowel movements [Recovering/Resolving]
  - Rash [Recovering/Resolving]
  - Product residue present [Recovered/Resolved]
  - Hepatic enzyme increased [Unknown]
  - Contusion [Recovering/Resolving]
  - Haemorrhage [Unknown]
  - Temperature intolerance [Recovering/Resolving]
  - Urticaria [Recovering/Resolving]
  - Skin laceration [Unknown]

NARRATIVE: CASE EVENT DATE: 20250701
